FAERS Safety Report 6893046-5 (Version None)
Quarter: 2010Q3

REPORT INFORMATION
  Report Type: 
  Country: None (occurrence: None)
  Receive Date: 20100731
  Receipt Date: 20090319
  Transmission Date: 20110219
  Serious: No
  Sender: FDA-Public Use
  Company Number: US-PFIZER INC-2007009936

PATIENT
  Sex: Male

DRUGS (3)
  1. CAVERJECT IMPULSE [Suspect]
     Indication: ERECTILE DYSFUNCTION
     Dosage: 20 UG, UNK
  2. CAVERJECT IMPULSE [Suspect]
     Dosage: 15 UG, 2X/DAY
  3. EDEX [Suspect]

REACTIONS (3)
  - DRUG EFFECT DECREASED [None]
  - EXPIRED DRUG ADMINISTERED [None]
  - INJURY ASSOCIATED WITH DEVICE [None]
